FAERS Safety Report 7564685-3 (Version None)
Quarter: 2011Q2

REPORT INFORMATION
  Report Type: 
  Country: None (occurrence: None)
  Receive Date: 20110622
  Receipt Date: 20101029
  Transmission Date: 20111010
  Serious: Yes (Other)
  Sender: FDA-Public Use
  Company Number: US-MYLANLABS-2010S1015719

PATIENT
  Age: 38 Year
  Sex: Male
  Weight: 71.67 kg

DRUGS (5)
  1. CLOZAPINE [Suspect]
     Route: 048
     Dates: start: 20100825, end: 20100101
  2. CLOZAPINE [Suspect]
     Indication: PSYCHOTIC DISORDER
     Route: 048
     Dates: start: 20100806, end: 20100824
  3. CLOZAPINE [Suspect]
     Route: 048
     Dates: start: 20100101
  4. HYDROXYZINE HCL [Concomitant]
     Route: 048
  5. MULTIVITAMIN AND MINERAL [Concomitant]
     Route: 048

REACTIONS (2)
  - LEUKOPENIA [None]
  - GRANULOCYTOPENIA [None]
